FAERS Safety Report 8067140-X (Version None)
Quarter: 2011Q4

REPORT INFORMATION
  Report Type: 
  Country: None (occurrence: None)
  Receive Date: 20111221
  Receipt Date: 20101124
  Transmission Date: 20120403
  Serious: Yes (Hospitalization)
  Sender: FDA-Public Use
  Company Number: PHHY2010US79946

PATIENT
  Age: 23 Year
  Sex: Male
  Weight: 67 kg

DRUGS (6)
  1. HYDREA [Concomitant]
  2. FOLIC ACID [Concomitant]
  3. ANALGESICS (NO INGREDIENTS/SUBSTANCE) [Concomitant]
  4. LORTAB (HYDROCODONE BITARTATE, PARACETAMOL) [Concomitant]
  5. EXJADE [Suspect]
     Indication: IRON OVERLOAD
     Dosage: 1500 MG, QD, ORAL
     Route: 048
  6. VITAMIN D [Concomitant]

REACTIONS (1)
  - SICKLE CELL ANAEMIA WITH CRISIS [None]
